FAERS Safety Report 9808994 (Version 2)
Quarter: 2014Q1

REPORT INFORMATION
  Report Type: Report from Study
  Country: US (occurrence: US)
  Receive Date: 20140110
  Receipt Date: 20140113
  Transmission Date: 20141002
  Serious: Yes (Hospitalization)
  Sender: FDA-Public Use
  Company Number: US-GLAXOSMITHKLINE-A1043802A

PATIENT
  Age: 62 Year
  Sex: Male
  Weight: 59.1 kg

DRUGS (11)
  1. LAPATINIB [Suspect]
     Indication: OESOPHAGEAL CARCINOMA
     Dosage: 1000MG PER DAY
     Route: 048
     Dates: start: 20130904
  2. 5 FLUOROURACIL [Suspect]
     Indication: OESOPHAGEAL CARCINOMA
     Dates: start: 20130904
  3. OXALIPLATIN [Suspect]
     Indication: OESOPHAGEAL CARCINOMA
     Route: 042
     Dates: start: 20130904
  4. CRESTOR [Concomitant]
     Indication: HYPERCHOLESTEROLAEMIA
     Dosage: 40MG PER DAY
     Dates: start: 199110
  5. GEMFIBROZIL [Concomitant]
     Indication: HYPERTRIGLYCERIDAEMIA
     Dosage: 600MG TWICE PER DAY
     Dates: start: 199110
  6. LISINOPRIL [Concomitant]
     Indication: HYPERTENSION
     Dosage: 5MG PER DAY
     Dates: start: 201007
  7. TOPROL [Concomitant]
     Indication: HYPERTENSION
     Dosage: 25MG PER DAY
     Dates: start: 199109
  8. COMPAZINE [Concomitant]
     Indication: NAUSEA
     Dosage: 10MG AS REQUIRED
  9. ZOFRAN [Concomitant]
     Indication: NAUSEA
     Dosage: 8MG AS REQUIRED
     Dates: start: 20130905
  10. MAGIC MOUTHWASH [Concomitant]
     Indication: MUCOSAL INFLAMMATION
     Dosage: 15MG FOUR TIMES PER DAY
     Dates: start: 20130918
  11. ASPIRIN [Concomitant]
     Indication: CARDIOVASCULAR EVENT PROPHYLAXIS
     Dosage: 8MG PER DAY
     Dates: start: 199109

REACTIONS (1)
  - Malnutrition [Recovered/Resolved]
